FAERS Safety Report 7572261-1 (Version None)
Quarter: 2011Q2

REPORT INFORMATION
  Report Type: 
  Country: None (occurrence: None)
  Receive Date: 20110624
  Receipt Date: 20110613
  Transmission Date: 20111010
  Serious: Yes (Other)
  Sender: FDA-Public Use
  Company Number: PHHY2011US44740

PATIENT
  Sex: Female
  Weight: 90 kg

DRUGS (4)
  1. ZOMETA [Suspect]
     Route: 042
  2. ABRAXANE [Concomitant]
     Indication: BREAST CANCER
     Route: 042
     Dates: start: 20100811
  3. LISINOPRIL [Concomitant]
     Indication: HYPERTENSION
     Dosage: 10 MG, UNK
     Route: 048
     Dates: start: 20110523
  4. ZOMETA [Suspect]
     Indication: METASTASES TO BONE
     Route: 042
     Dates: start: 20060611

REACTIONS (2)
  - FOOT FRACTURE [None]
  - PATHOLOGICAL FRACTURE [None]
